FAERS Safety Report 17363201 (Version 1)
Quarter: 2020Q1

REPORT INFORMATION
  Report Type: Spontaneous
  Country: DE (occurrence: DE)
  Receive Date: 20200203
  Receipt Date: 20200203
  Transmission Date: 20200409
  Serious: Yes (Hospitalization, Other)
  Sender: FDA-Public Use
  Company Number: DE-BAYER-2020-016931

PATIENT
  Age: 74 Year
  Sex: Male
  Weight: 84 kg

DRUGS (6)
  1. VITRAKVI [Suspect]
     Active Substance: LAROTRECTINIB
     Indication: RECTAL CANCER
     Dosage: 100 MG DAILY
     Dates: start: 20191227
  2. CODEIN [Concomitant]
     Active Substance: CODEINE
     Indication: COUGH
     Dosage: 100 MG DAILY
  3. SPIRONOLACTON [Concomitant]
     Active Substance: SPIRONOLACTONE
     Indication: ASCITES
     Dosage: 50 MG DAILY
  4. VITRAKVI [Suspect]
     Active Substance: LAROTRECTINIB
     Indication: RECTAL CANCER
     Dosage: 75 MG DAILY
     Dates: end: 20200103
  5. SPIRONOLACTON [Concomitant]
     Active Substance: SPIRONOLACTONE
     Indication: OEDEMA
  6. ABSTRAL [Concomitant]
     Active Substance: FENTANYL CITRATE
     Indication: PAIN
     Dosage: 100 MCG DAILY

REACTIONS (4)
  - Abdominal mass [Not Recovered/Not Resolved]
  - Blood bilirubin increased [Not Recovered/Not Resolved]
  - Cholangitis [Not Recovered/Not Resolved]
  - Cholestasis [Not Recovered/Not Resolved]

NARRATIVE: CASE EVENT DATE: 20200103
